FAERS Safety Report 13895448 (Version 1)
Quarter: 2017Q3

REPORT INFORMATION
  Report Type: Spontaneous
  Country: US (occurrence: US)
  Receive Date: 20170818
  Receipt Date: 20170818
  Transmission Date: 20171127
  Serious: Yes (Other)
  Sender: FDA-Public Use
  Company Number: None

PATIENT
  Age: 31 Year
  Sex: Male
  Weight: 74.25 kg

DRUGS (1)
  1. VRAYLAR [Suspect]
     Active Substance: CARIPRAZINE
     Indication: BIPOLAR DISORDER
     Dosage: ?          QUANTITY:1 CAPSULE(S);?
     Route: 048
     Dates: start: 20170731, end: 20170815

REACTIONS (6)
  - Theft [None]
  - Legal problem [None]
  - Compulsive shopping [None]
  - Impulsive behaviour [None]
  - Mania [None]
  - Intrusive thoughts [None]

NARRATIVE: CASE EVENT DATE: 20170814
